FAERS Safety Report 25285571 (Version 1)
Quarter: 2025Q2

REPORT INFORMATION
  Report Type: Report from Study
  Country: CA (occurrence: CA)
  Receive Date: 20250509
  Receipt Date: 20250509
  Transmission Date: 20250716
  Serious: Yes (Other)
  Sender: SAMSUNG BIOEPIS
  Company Number: CA-SAMSUNG BIOEPIS-SB-2024-06516

PATIENT
  Age: 63 Year
  Sex: Male

DRUGS (7)
  1. RENFLEXIS [Suspect]
     Active Substance: INFLIXIMAB-ABDA
     Indication: Colitis ulcerative
     Dosage: 700MG IV/Q6 WEEKS;
     Route: 042
     Dates: start: 20200102, end: 20230525
  2. RENFLEXIS [Suspect]
     Active Substance: INFLIXIMAB-ABDA
     Dosage: 700MG IV/Q5 WEEKS;
     Route: 042
     Dates: start: 20230706
  3. RENFLEXIS [Suspect]
     Active Substance: INFLIXIMAB-ABDA
     Dosage: 100MG/700MG/Q5W;
     Route: 042
     Dates: start: 20191230
  4. IMURAN [Concomitant]
     Active Substance: AZATHIOPRINE
     Indication: Product used for unknown indication
     Route: 065
  5. VITAMIN B12 [Concomitant]
     Active Substance: CYANOCOBALAMIN
     Indication: Product used for unknown indication
     Route: 065
  6. VITAMINS [Concomitant]
     Active Substance: VITAMINS
     Indication: Product used for unknown indication
     Route: 065
  7. VITAMIN D [Concomitant]
     Active Substance: VITAMIN D NOS
     Indication: Product used for unknown indication
     Route: 065

REACTIONS (8)
  - Herpes zoster [Recovering/Resolving]
  - Calculus bladder [Unknown]
  - Bladder cancer [Unknown]
  - Bladder neoplasm [Unknown]
  - Pain [Recovering/Resolving]
  - Rash [Recovering/Resolving]
  - Bladder hypertrophy [Unknown]
  - Off label use [Unknown]

NARRATIVE: CASE EVENT DATE: 20240212
